FAERS Safety Report 12843578 (Version 3)
Quarter: 2017Q1

REPORT INFORMATION
  Report Type: Spontaneous
  Country: PE (occurrence: PE)
  Receive Date: 20161013
  Receipt Date: 20170324
  Transmission Date: 20170428
  Serious: Yes (Other)
  Sender: FDA-Public Use
  Company Number: PE-PFIZER INC-2016466978

PATIENT
  Age: 60 Year
  Sex: Female

DRUGS (11)
  1. COZAAR [Concomitant]
     Active Substance: LOSARTAN POTASSIUM
     Dosage: UNK
  2. VALCOTE /00228501/ [Concomitant]
     Dosage: 1 G, DAILY
  3. EFFEXOR XR [Suspect]
     Active Substance: VENLAFAXINE HYDROCHLORIDE
     Dosage: 150 MG, DAILY
  4. EFFEXOR XR [Suspect]
     Active Substance: VENLAFAXINE HYDROCHLORIDE
     Dosage: UNK
  5. SEROQUEL [Concomitant]
     Active Substance: QUETIAPINE FUMARATE
     Dosage: 100 MG, UNK
  6. PACITRAN [Concomitant]
     Indication: FIBROMYALGIA
     Dosage: UNK
  7. EFFEXOR XR [Suspect]
     Active Substance: VENLAFAXINE HYDROCHLORIDE
     Dosage: 75 MG, UNK
     Dates: start: 2002
  8. NEURONTIN [Suspect]
     Active Substance: GABAPENTIN
     Dosage: 600 MG, UNK
     Route: 048
     Dates: start: 1997
  9. SEROQUEL [Concomitant]
     Active Substance: QUETIAPINE FUMARATE
     Dosage: 50 MG, UNK
  10. EFFEXOR XR [Suspect]
     Active Substance: VENLAFAXINE HYDROCHLORIDE
     Dosage: UNK
     Dates: start: 1996
  11. EFFEXOR XR [Suspect]
     Active Substance: VENLAFAXINE HYDROCHLORIDE
     Dosage: 300 MG, DAILY
     Route: 048

REACTIONS (21)
  - Bipolar disorder [Unknown]
  - Bursitis [Unknown]
  - Pain in extremity [Unknown]
  - Bone pain [Recovered/Resolved]
  - Drug effect incomplete [Unknown]
  - Blood cholesterol abnormal [Unknown]
  - Depression [Unknown]
  - Heart alternation [Unknown]
  - Malaise [Unknown]
  - Overdose [Recovered/Resolved]
  - Brucellosis [Unknown]
  - Emotional disorder [Unknown]
  - Skin discolouration [Unknown]
  - Gastritis [Unknown]
  - Menopause [Unknown]
  - Tachycardia [Unknown]
  - Coronary artery disease [Unknown]
  - Osteoarthritis [Unknown]
  - Skin disorder [Unknown]
  - Hypertension [Unknown]
  - Head deformity [Unknown]

NARRATIVE: CASE EVENT DATE: 2001
